FAERS Safety Report 5935421-9 (Version None)
Quarter: 2008Q4

REPORT INFORMATION
  Report Type: 
  Country: None (occurrence: None)
  Receive Date: 20081030
  Receipt Date: 20081022
  Transmission Date: 20090506
  Serious: Yes (Hospitalization)
  Sender: FDA-Public Use
  Company Number: JP-AMGEN-US295540

PATIENT
  Sex: Female

DRUGS (8)
  1. ENBREL [Suspect]
     Indication: RHEUMATOID ARTHRITIS
     Route: 058
     Dates: start: 20080604
  2. RHEUMATREX [Suspect]
     Indication: DRUG USE FOR UNKNOWN INDICATION
     Dates: start: 20070419, end: 20080424
  3. RHEUMATREX [Suspect]
     Dates: start: 20080424, end: 20080809
  4. BREDININ [Concomitant]
     Indication: RHEUMATOID ARTHRITIS
     Dates: start: 20080131
  5. FERROMIA [Concomitant]
     Indication: IRON DEFICIENCY ANAEMIA
     Route: 048
     Dates: start: 20070419, end: 20080904
  6. NORVASC [Concomitant]
     Indication: HYPERTENSION
     Dates: start: 20070419
  7. BONALON [Concomitant]
     Indication: OSTEOPOROSIS
     Dates: start: 20070419
  8. LOXONIN [Concomitant]
     Indication: RHEUMATOID ARTHRITIS
     Dates: start: 20070419

REACTIONS (2)
  - CELL MARKER INCREASED [None]
  - MOVEMENT DISORDER [None]
